FAERS Safety Report 13183607 (Version 3)
Quarter: 2017Q1

REPORT INFORMATION
  Report Type: Spontaneous
  Country: IT (occurrence: IT)
  Receive Date: 20170203
  Receipt Date: 20170302
  Transmission Date: 20170428
  Serious: Yes (Death, Other)
  Sender: FDA-Public Use
  Company Number: IT-ASTRAZENECA-2017SE10329

PATIENT
  Age: 63 Year
  Sex: Female

DRUGS (6)
  1. ACETYLSALICYLIC ACID [Interacting]
     Active Substance: ASPIRIN
     Indication: ACUTE MYOCARDIAL INFARCTION
     Route: 048
     Dates: start: 2000, end: 20170125
  2. SIMVASTATIN. [Concomitant]
     Active Substance: SIMVASTATIN
     Indication: DYSLIPIDAEMIA
  3. HEPARIN [Interacting]
     Active Substance: HEPARIN SODIUM
     Dosage: 2500.0IU UNKNOWN
     Route: 042
     Dates: start: 20170125, end: 20170125
  4. FONDAPARINUX [Interacting]
     Active Substance: FONDAPARINUX
     Route: 058
     Dates: start: 20170123, end: 20170125
  5. BRILIQUE [Suspect]
     Active Substance: TICAGRELOR
     Dosage: 180.0MG UNKNOWN
     Route: 048
     Dates: start: 20170125, end: 20170126
  6. NITROGLICERIN [Concomitant]
     Active Substance: NITROGLYCERIN
     Route: 042
     Dates: start: 20170123, end: 20170123

REACTIONS (8)
  - Cerebral haemorrhage [Fatal]
  - Acute myocardial infarction [Unknown]
  - Drug interaction [Fatal]
  - Atrial fibrillation [Unknown]
  - Blood pressure increased [Unknown]
  - Coronary artery dissection [Unknown]
  - Migraine [Unknown]
  - Mydriasis [Unknown]

NARRATIVE: CASE EVENT DATE: 20170123
